FAERS Safety Report 4816204-X (Version None)
Quarter: 2005Q4

REPORT INFORMATION
  Report Type: 
  Country: None (occurrence: None)
  Receive Date: 20051026
  Receipt Date: 20051013
  Transmission Date: 20060501
  Serious: Yes (Other)
  Sender: FDA-Public Use
  Company Number: HQWYE062523AUG05

PATIENT
  Sex: Female

DRUGS (2)
  1. PROPRANOLOL HYDROCHLORIDE [Suspect]
     Indication: MIGRAINE
     Dosage: 20 MG 2X PER 1 DAY; TRANSPLACENTAL
     Route: 064
     Dates: start: 20040101, end: 20050730
  2. LEVOTHYROXINE SODIUM [Concomitant]
     Route: 064

REACTIONS (8)
  - APGAR SCORE LOW [None]
  - CONGENITAL MUSCLE ABSENCE [None]
  - CONGENITAL MUSCULOSKELETAL ANOMALY [None]
  - CYSTIC FIBROSIS [None]
  - DRUG EXPOSURE DURING PREGNANCY [None]
  - HERNIA CONGENITAL [None]
  - THROMBOSIS [None]
  - VASCULAR ANOMALY [None]
